FAERS Safety Report 4434758-2 (Version None)
Quarter: 2004Q3

REPORT INFORMATION
  Report Type: 
  Country: None (occurrence: None)
  Receive Date: 20040827
  Receipt Date: 20040726
  Transmission Date: 20050211
  Serious: No
  Sender: FDA-Public Use
  Company Number: US-BRISTOL-MYERS SQUIBB COMPANY-12653390

PATIENT
  Age: 41 Year
  Sex: Female

DRUGS (1)
  1. DEFINITY [Suspect]
     Indication: STRESS ECHOCARDIOGRAM
     Dosage: 2 CC BOLUS BEFORE AND AFTER STRESS, EACH FOLLOWED BY NORMAL SALINE FLUSH OVER 15 SEC
     Route: 051
     Dates: start: 20040726, end: 20040726

REACTIONS (4)
  - CHEST PAIN [None]
  - HEADACHE [None]
  - PRURITUS [None]
  - URTICARIA [None]
